FAERS Safety Report 7420208-0 (Version None)
Quarter: 2011Q2

REPORT INFORMATION
  Report Type: 
  Country: None (occurrence: None)
  Receive Date: 20110418
  Receipt Date: 20110412
  Transmission Date: 20111010
  Serious: Yes (Hospitalization)
  Sender: FDA-Public Use
  Company Number: CA-MEDIMMUNE-MEDI-0012480

PATIENT
  Sex: Male
  Weight: 2.82 kg

DRUGS (6)
  1. FUROSEMIDE [Concomitant]
     Route: 048
  2. IRON [Concomitant]
     Route: 048
  3. SYNAGIS [Suspect]
     Indication: HEART DISEASE CONGENITAL
     Route: 030
     Dates: start: 20101223, end: 20101223
  4. ASPIRIN [Concomitant]
     Route: 048
  5. ERGOCALCIFEROL [Concomitant]
     Route: 048
  6. ENOXAPARIN [Concomitant]
     Route: 058

REACTIONS (1)
  - BRONCHIOLITIS [None]
